FAERS Safety Report 25492067 (Version 1)
Quarter: 2025Q2

REPORT INFORMATION
  Report Type: Spontaneous
  Country: HU (occurrence: HU)
  Receive Date: 20250630
  Receipt Date: 20250630
  Transmission Date: 20250716
  Serious: Yes (Hospitalization)
  Sender: CELLTRION
  Company Number: HU-ROCHE-10000194013

PATIENT

DRUGS (1)
  1. RITUXIMAB [Suspect]
     Active Substance: RITUXIMAB
     Indication: Product used for unknown indication
     Route: 065

REACTIONS (3)
  - Change of bowel habit [Unknown]
  - Abdominal pain [Unknown]
  - Abdominal pain [Unknown]
